FAERS Safety Report 8967213 (Version 1)
Quarter: 2012Q4

REPORT INFORMATION
  Report Type: 
  Country: US (occurrence: US)
  Receive Date: 20121214
  Receipt Date: 20121214
  Transmission Date: 20130627
  Serious: Yes (Other)
  Sender: FDA-Public Use
  Company Number: US-GLAXOSMITHKLINE-A0860614A

PATIENT
  Sex: Female
  Weight: 90.9 kg

DRUGS (1)
  1. FLONASE [Suspect]
     Indication: MULTIPLE ALLERGIES
     Route: 045

REACTIONS (3)
  - Ageusia [Recovering/Resolving]
  - Anosmia [Recovering/Resolving]
  - Parosmia [Recovering/Resolving]
